FAERS Safety Report 24791866 (Version 1)
Quarter: 2024Q4

REPORT INFORMATION
  Report Type: Spontaneous
  Country: ES (occurrence: ES)
  Receive Date: 20241231
  Receipt Date: 20241231
  Transmission Date: 20250115
  Serious: Yes (Other)
  Sender: ASTELLAS
  Company Number: None

PATIENT
  Age: 86 Year
  Sex: Male

DRUGS (11)
  1. XTANDI [Suspect]
     Active Substance: ENZALUTAMIDE
     Indication: Prostate cancer
     Route: 048
     Dates: start: 20241007
  2. OMEPRAZOLE CINFA [Concomitant]
     Indication: Product used for unknown indication
     Route: 048
     Dates: start: 20241023
  3. ATORVASTATIN STADAGEN [Concomitant]
     Indication: Product used for unknown indication
     Route: 048
     Dates: start: 20170425
  4. ASPIRIN [Concomitant]
     Active Substance: ASPIRIN
     Indication: Product used for unknown indication
     Route: 048
     Dates: start: 20140313
  5. BISOPROLOL [Concomitant]
     Active Substance: BISOPROLOL
     Indication: Product used for unknown indication
     Route: 048
     Dates: start: 20170425
  6. RAMPIPRIL SANDOZ [Concomitant]
     Indication: Product used for unknown indication
     Route: 048
     Dates: start: 20170131
  7. LYRICA [Concomitant]
     Active Substance: PREGABALIN
     Indication: Product used for unknown indication
     Route: 048
     Dates: start: 20221228
  8. LYRICA [Concomitant]
     Active Substance: PREGABALIN
     Indication: Product used for unknown indication
     Route: 065
     Dates: start: 20240405
  9. CALCIFEDIOL [Concomitant]
     Active Substance: CALCIFEDIOL
     Indication: Product used for unknown indication
     Route: 048
     Dates: start: 20221227
  10. ELIGARD SEMESTRAL [Concomitant]
     Indication: Product used for unknown indication
     Route: 058
     Dates: start: 20230111
  11. NOLOTIL [Concomitant]
     Indication: Product used for unknown indication
     Route: 048
     Dates: start: 20150316

REACTIONS (2)
  - Amnesia [Unknown]
  - Abdominal discomfort [Unknown]

NARRATIVE: CASE EVENT DATE: 20241010
